FAERS Safety Report 24454340 (Version 2)
Quarter: 2024Q4

REPORT INFORMATION
  Report Type: Report from Study
  Country: US (occurrence: US)
  Receive Date: 20241017
  Receipt Date: 20241018
  Transmission Date: 20250115
  Serious: No
  Sender: ROCHE
  Company Number: US-ROCHE-3470309

PATIENT
  Age: 60 Year
  Sex: Male

DRUGS (21)
  1. RITUXAN [Suspect]
     Active Substance: RITUXIMAB
     Indication: Granulomatosis with polyangiitis
     Dosage: 1000 MG IV 2 DOSES 2 WEEKS APART EVERY 4 MONTHS
     Route: 041
  2. RITUXAN [Suspect]
     Active Substance: RITUXIMAB
     Indication: Arteritis
  3. RITUXAN [Suspect]
     Active Substance: RITUXIMAB
     Indication: Connective tissue disorder
  4. PERCOCET [Concomitant]
     Active Substance: ACETAMINOPHEN\OXYCODONE HYDROCHLORIDE
  5. MAGNESIUM OXIDE [Concomitant]
     Active Substance: MAGNESIUM OXIDE
  6. WARFARIN [Concomitant]
     Active Substance: WARFARIN
  7. AMIODARONE [Concomitant]
     Active Substance: AMIODARONE
  8. PLAVIX [Concomitant]
     Active Substance: CLOPIDOGREL BISULFATE
  9. PREGABALIN [Concomitant]
     Active Substance: PREGABALIN
  10. PRAVASTATIN [Concomitant]
     Active Substance: PRAVASTATIN
  11. PREDNISONE [Concomitant]
     Active Substance: PREDNISONE
  12. PLAQUENIL [Concomitant]
     Active Substance: HYDROXYCHLOROQUINE SULFATE
  13. CELLCEPT [Concomitant]
     Active Substance: MYCOPHENOLATE MOFETIL
  14. LASIX [Concomitant]
     Active Substance: FUROSEMIDE
  15. LOSARTAN [Concomitant]
     Active Substance: LOSARTAN
  16. METOPROLOL [Concomitant]
     Active Substance: METOPROLOL
  17. CHOLECALCIFEROL [Concomitant]
     Active Substance: CHOLECALCIFEROL
  18. ZINC SULFATE [Concomitant]
     Active Substance: ZINC SULFATE
  19. ASCORBIC ACID [Concomitant]
     Active Substance: ASCORBIC ACID
  20. SILDENAFIL [Concomitant]
     Active Substance: SILDENAFIL
  21. OMEPRAZOLE [Concomitant]
     Active Substance: OMEPRAZOLE

REACTIONS (2)
  - Off label use [Unknown]
  - No adverse event [Unknown]
